FAERS Safety Report 5705808-8 (Version None)
Quarter: 2008Q2

REPORT INFORMATION
  Report Type: 
  Country: None (occurrence: None)
  Receive Date: 20080414
  Receipt Date: 20080414
  Transmission Date: 20081010
  Serious: Yes (Hospitalization, Disabling, Other)
  Sender: FDA-Public Use
  Company Number: None

PATIENT
  Age: 27 Year
  Sex: Female
  Weight: 65.7716 kg

DRUGS (1)
  1. MIRENA [Suspect]
     Indication: CONTRACEPTION
     Dosage: AM AMOUNT OF HORMONE IN UTERUS EVERY DAY FOR 5 YR VAG
     Route: 067
     Dates: start: 20071012, end: 20071126

REACTIONS (11)
  - ANXIETY [None]
  - DEPRESSION [None]
  - FAMILY STRESS [None]
  - IMPAIRED WORK ABILITY [None]
  - IUCD COMPLICATION [None]
  - MALAISE [None]
  - MOOD SWINGS [None]
  - NAUSEA [None]
  - NERVOUSNESS [None]
  - PANIC ATTACK [None]
  - SUICIDAL IDEATION [None]
